FAERS Safety Report 19457677 (Version 2)
Quarter: 2024Q1

REPORT INFORMATION
  Report Type: Spontaneous
  Country: GB (occurrence: GB)
  Receive Date: 20210624
  Receipt Date: 20240217
  Transmission Date: 20240410
  Serious: Yes (Hospitalization, Other)
  Sender: FDA-Public Use
  Company Number: GB-RP-020412

PATIENT
  Age: 76 Year
  Sex: Female

DRUGS (3)
  1. CLARITHROMYCIN [Interacting]
     Active Substance: CLARITHROMYCIN
     Indication: Pneumonia
     Dosage: UNK
     Route: 065
  2. AMOXICILLIN [Suspect]
     Active Substance: AMOXICILLIN
     Indication: Product used for unknown indication
     Dosage: UNK
     Route: 065
  3. WARFARIN [Suspect]
     Active Substance: WARFARIN
     Indication: Atrial fibrillation
     Dosage: UNK
     Route: 065

REACTIONS (6)
  - Large intestinal obstruction [Recovered/Resolved]
  - Colostomy [Recovered/Resolved]
  - Abdominal wall haematoma [Unknown]
  - Drug interaction [Recovered/Resolved]
  - Tachycardia [Unknown]
  - Diverticulum intestinal [Unknown]
